FAERS Safety Report 13382912 (Version 1)
Quarter: 2017Q1

REPORT INFORMATION
  Report Type: Spontaneous
  Country: JP (occurrence: JP)
  Receive Date: 20170329
  Receipt Date: 20170329
  Transmission Date: 20170429
  Serious: Yes (Hospitalization)
  Sender: FDA-Public Use
  Company Number: JP-SA-2017SA051157

PATIENT
  Sex: Female

DRUGS (1)
  1. ANTI-THYMOCYTE GLOBULIN (RABBIT) [Suspect]
     Active Substance: LAPINE T-LYMPHOCYTE IMMUNE GLOBULIN
     Indication: BONE MARROW CONDITIONING REGIMEN
     Route: 065
     Dates: start: 201312

REACTIONS (5)
  - Pyrexia [Recovering/Resolving]
  - Coombs positive haemolytic anaemia [Recovering/Resolving]
  - Decreased appetite [Recovering/Resolving]
  - Dyspnoea exertional [Recovering/Resolving]
  - Cough [Recovering/Resolving]
